FAERS Safety Report 14835927 (Version 1)
Quarter: 2018Q2

REPORT INFORMATION
  Report Type: Spontaneous
  Country: FR (occurrence: FR)
  Receive Date: 20180502
  Receipt Date: 20180502
  Transmission Date: 20180711
  Serious: Yes (Hospitalization, Other)
  Sender: FDA-Public Use
  Company Number: FR-MERCK KGAA-2046951

PATIENT
  Age: 53 Year
  Sex: Female

DRUGS (1)
  1. NOVOTHYROX [Suspect]
     Active Substance: LEVOTHYROXINE SODIUM
     Indication: PRODUCT USED FOR UNKNOWN INDICATION
     Dates: start: 201704

REACTIONS (22)
  - Insomnia [None]
  - Ill-defined disorder [None]
  - Lung disorder [None]
  - Throat tightness [None]
  - Pneumonia [None]
  - Depression [None]
  - Tinnitus [None]
  - Fear of falling [None]
  - Fatigue [None]
  - Tachycardia [None]
  - Muscle spasms [None]
  - Alopecia [None]
  - Night sweats [None]
  - Weight decreased [None]
  - Social avoidant behaviour [None]
  - Arthralgia [None]
  - Suicidal ideation [None]
  - Myalgia [None]
  - Marital problem [None]
  - Asthenia [None]
  - Loss of libido [None]
  - Anger [None]

NARRATIVE: CASE EVENT DATE: 201704
